FAERS Safety Report 13151388 (Version 1)
Quarter: 2017Q1

REPORT INFORMATION
  Report Type: Spontaneous
  Country: US (occurrence: US)
  Receive Date: 20170125
  Receipt Date: 20170125
  Transmission Date: 20170428
  Serious: Yes (Other)
  Sender: FDA-Public Use
  Company Number: None

PATIENT
  Age: 86 Year
  Sex: Male
  Weight: 111.68 kg

DRUGS (7)
  1. TERAZOSIN [Concomitant]
     Active Substance: TERAZOSIN\TERAZOSIN HYDROCHLORIDE
  2. ASPIRIN. [Concomitant]
     Active Substance: ASPIRIN
  3. PROPAFENONS [Concomitant]
  4. AMLODIPINE [Concomitant]
     Active Substance: AMLODIPINE BESYLATE
  5. HYDROCHLOROTHIAZIDE. [Concomitant]
     Active Substance: HYDROCHLOROTHIAZIDE
  6. LEVOFLOXACIN 500MG GENERIC FOR LEVAQUIN ZYDUS [Suspect]
     Active Substance: LEVOFLOXACIN
     Indication: BRONCHITIS
     Dosage: ?          QUANTITY:L ACRE-K?CH/;?
     Route: 048
     Dates: start: 20170106, end: 20170107
  7. FLUTICASONE. [Concomitant]
     Active Substance: FLUTICASONE

REACTIONS (5)
  - Tinnitus [None]
  - Vitreous floaters [None]
  - Visual impairment [None]
  - Seizure [None]
  - Confusional state [None]

NARRATIVE: CASE EVENT DATE: 20170107
